FAERS Safety Report 17807996 (Version 2)
Quarter: 2021Q1

REPORT INFORMATION
  Report Type: Report from Study
  Country: LB (occurrence: LB)
  Receive Date: 20200520
  Receipt Date: 20210322
  Transmission Date: 20210419
  Serious: Yes (Hospitalization, Other)
  Sender: FDA-Public Use
  Company Number: NVSC2020LB137627

PATIENT
  Sex: Female
  Weight: 67 kg

DRUGS (4)
  1. JADENU [Suspect]
     Active Substance: DEFERASIROX
     Dosage: 180 MG
     Route: 048
     Dates: start: 20190620
  2. JADENU [Suspect]
     Active Substance: DEFERASIROX
     Indication: THALASSAEMIA
     Dosage: 360 MG
     Route: 048
     Dates: start: 20190620
  3. ZALDIAR [Concomitant]
     Active Substance: ACETAMINOPHEN\TRAMADOL HYDROCHLORIDE
     Indication: PAIN
     Dosage: UNK, PRN
     Route: 065
  4. PROFINAL [Concomitant]
     Indication: PAIN
     Dosage: UNK, PRN
     Route: 065

REACTIONS (2)
  - Lumbar vertebral fracture [Recovered/Resolved]
  - Osteoporosis [Recovered/Resolved]
